FAERS Safety Report 23078077 (Version 1)
Quarter: 2023Q4

REPORT INFORMATION
  Report Type: Report from Study
  Country: US (occurrence: US)
  Receive Date: 20231018
  Receipt Date: 20231018
  Transmission Date: 20240109
  Serious: Yes (Death, Hospitalization, Other)
  Sender: FDA-Public Use
  Company Number: US-ABBVIE-5454742

PATIENT
  Age: 79 Year
  Sex: Male
  Weight: 52 kg

DRUGS (1)
  1. CREON [Suspect]
     Active Substance: PANCRELIPASE AMYLASE\PANCRELIPASE LIPASE\PANCRELIPASE PROTEASE
     Indication: Pancreatic failure
     Dosage: FORM STRENGTH 36000 UNITS, FREQUENCY TEXT: 1 CAPSULE PER MEAL, 1 CAPSULE PER SNACK
     Route: 048
     Dates: start: 202302, end: 202310

REACTIONS (2)
  - Pancreatic carcinoma metastatic [Fatal]
  - Intestinal obstruction [Recovered/Resolved]

NARRATIVE: CASE EVENT DATE: 20230901
